FAERS Safety Report 14107926 (Version 2)
Quarter: 2017Q4

REPORT INFORMATION
  Report Type: Report from Study
  Country: BR (occurrence: BR)
  Receive Date: 20171019
  Receipt Date: 20171117
  Transmission Date: 20180321
  Serious: No
  Sender: FDA-Public Use
  Company Number: PHHY2017BR153223

PATIENT
  Sex: Female
  Weight: 73 kg

DRUGS (5)
  1. LOSARTAN. [Concomitant]
     Active Substance: LOSARTAN
     Indication: HYPERTENSION
     Dosage: 2 DF, QD
     Route: 048
  2. EXELON PATCH [Suspect]
     Active Substance: RIVASTIGMINE
     Indication: DEMENTIA
     Dosage: 9.5 MG, PATCH 10 (CM2), QD (30 PATCHES)
     Route: 062
     Dates: start: 2016
  3. ATORVASTATIN [Concomitant]
     Active Substance: ATORVASTATIN
     Indication: HYPERTENSION
     Dosage: 1 DF, QD
     Route: 048
  4. QUETIAPINE. [Suspect]
     Active Substance: QUETIAPINE
     Indication: MEMORY IMPAIRMENT
     Route: 065
  5. PANTOZOL [Concomitant]
     Active Substance: PANTOPRAZOLE SODIUM
     Indication: PROPHYLAXIS
     Dosage: 1 DF, QD
     Route: 048

REACTIONS (11)
  - Screaming [Recovering/Resolving]
  - Malaise [Recovering/Resolving]
  - Somnolence [Unknown]
  - Agitation [Recovering/Resolving]
  - Abnormal behaviour [Recovering/Resolving]
  - Sleep disorder [Recovering/Resolving]
  - Aggression [Recovered/Resolved]
  - Performance enhancing product use [Recovering/Resolving]
  - Nervousness [Recovered/Resolved]
  - Hypersomnia [Unknown]
  - Irritability [Recovering/Resolving]
